FAERS Safety Report 10507546 (Version 3)
Quarter: 2023Q1

REPORT INFORMATION
  Report Type: Spontaneous
  Country: US (occurrence: US)
  Receive Date: 20141009
  Receipt Date: 20230125
  Transmission Date: 20230417
  Serious: No
  Sender: FDA-Public Use
  Company Number: US-PFIZER INC-2014275038

PATIENT
  Sex: Female

DRUGS (1)
  1. LEVOXYL [Suspect]
     Active Substance: LEVOTHYROXINE SODIUM
     Dosage: UNK

REACTIONS (2)
  - Malabsorption [Unknown]
  - Product physical issue [Unknown]
